FAERS Safety Report 11781526 (Version 1)
Quarter: 2015Q4

REPORT INFORMATION
  Report Type: Spontaneous
  Country: FR (occurrence: FR)
  Receive Date: 20151126
  Receipt Date: 20151126
  Transmission Date: 20160305
  Serious: Yes (Hospitalization)
  Sender: FDA-Public Use
  Company Number: FR-009507513-1511FRA010317

PATIENT
  Age: 21 Year
  Sex: Female

DRUGS (4)
  1. GONADOTROPHINE CHORIONIQUE ENDO 1500 UI/1ML [Suspect]
     Active Substance: GONADOTROPHIN, CHORIONIC
     Dosage: 10000 IU SINGLE DOSE
     Route: 030
     Dates: start: 20150914, end: 20150914
  2. FOLLITROPIN BETA [Suspect]
     Active Substance: FOLLITROPIN
     Dosage: 150 IU, DAILY
     Route: 058
     Dates: start: 20150904, end: 20150911
  3. FOLLITROPIN BETA [Suspect]
     Active Substance: FOLLITROPIN
     Dosage: 250 IU, DAILY
     Route: 058
     Dates: start: 20150912, end: 20150913
  4. CETROTIDE [Suspect]
     Active Substance: CETRORELIX ACETATE
     Dosage: 1 INJECTION, DAILY
     Route: 058
     Dates: start: 20150910, end: 20150914

REACTIONS (1)
  - Peritoneal haemorrhage [Recovered/Resolved]

NARRATIVE: CASE EVENT DATE: 20150916
